FAERS Safety Report 9884754 (Version 1)
Quarter: 2014Q1

REPORT INFORMATION
  Report Type: Spontaneous
  Country: US (occurrence: None)
  Receive Date: 20140207
  Receipt Date: 20140207
  Transmission Date: 20141002
  Serious: No
  Sender: FDA-Public Use
  Company Number: None

PATIENT
  Sex: 0

DRUGS (2)
  1. CLONAZEPAM [Suspect]
     Dates: start: 20140202
  2. DIAZEPAM [Suspect]
     Dates: start: 20140202

REACTIONS (2)
  - Product packaging issue [None]
  - Product label confusion [None]
